FAERS Safety Report 4519837-3 (Version None)
Quarter: 2004Q4

REPORT INFORMATION
  Report Type: 
  Country: None (occurrence: None)
  Receive Date: 20041207
  Receipt Date: 20040930
  Transmission Date: 20050328
  Serious: Yes (Other)
  Sender: FDA-Public Use
  Company Number: PHNU2004DE03411

PATIENT
  Age: 52 Year
  Sex: Male
  Weight: 115 kg

DRUGS (1)
  1. SANDIMMUNE [Suspect]
     Indication: LIVER TRANSPLANT
     Dosage: UNK MG, BID
     Route: 048
     Dates: start: 19930401, end: 20040901

REACTIONS (3)
  - AMNESIA [None]
  - CEREBROSCLEROSIS [None]
  - MEMORY IMPAIRMENT [None]
